FAERS Safety Report 4388671-X (Version None)
Quarter: 2004Q3

REPORT INFORMATION
  Report Type: 
  Country: None (occurrence: None)
  Receive Date: 20040701
  Receipt Date: 20040506
  Transmission Date: 20050211
  Serious: Yes (Death)
  Sender: FDA-Public Use
  Company Number: US-BRISTOL-MYERS SQUIBB COMPANY-12581120

PATIENT
  Age: 56 Year
  Sex: Female

DRUGS (2)
  1. ERBITUX [Suspect]
     Indication: COLORECTAL CANCER METASTATIC
     Route: 042
     Dates: start: 20040408, end: 20040408
  2. CAMPTOSAR [Concomitant]
     Dates: start: 20040408, end: 20040408

REACTIONS (2)
  - CARDIO-RESPIRATORY ARREST [None]
  - STOMATITIS [None]
